FAERS Safety Report 6945608-4 (Version None)
Quarter: 2010Q3

REPORT INFORMATION
  Report Type: 
  Country: None (occurrence: None)
  Receive Date: 20100819
  Receipt Date: 20100803
  Transmission Date: 20110219
  Serious: Yes (Hospitalization, Other)
  Sender: FDA-Public Use
  Company Number: 2010002289

PATIENT
  Age: 61 Year
  Sex: Female
  Weight: 69.9 kg

DRUGS (4)
  1. ERLOTINIB HYDROCHLORIDE [Suspect]
     Indication: ADENOCARCINOMA PANCREAS
     Dosage: 100 MG, QD, ORAL
     Route: 048
     Dates: start: 20100520, end: 20100527
  2. GEMCITABINE HYDROCHLORIDE [Suspect]
     Indication: ADENOCARCINOMA PANCREAS
     Dosage: 1000 MG/M2, INTRAVENOUS
     Route: 042
     Dates: start: 20100520, end: 20100520
  3. DILAUDID [Concomitant]
  4. VALSARTAN [Concomitant]

REACTIONS (12)
  - ABDOMINAL PAIN [None]
  - CHEST PAIN [None]
  - DEHYDRATION [None]
  - DIARRHOEA [None]
  - DIZZINESS [None]
  - DYSPNOEA [None]
  - FATIGUE [None]
  - HAEMOGLOBIN DECREASED [None]
  - MALIGNANT NEOPLASM PROGRESSION [None]
  - PANCREATIC CARCINOMA METASTATIC [None]
  - PRODUCTIVE COUGH [None]
  - RENAL FAILURE [None]
